FAERS Safety Report 9283428 (Version 1)
Quarter: 2013Q2

REPORT INFORMATION
  Report Type: Spontaneous
  Country: US (occurrence: US)
  Receive Date: 20130510
  Receipt Date: 20130510
  Transmission Date: 20140414
  Serious: No
  Sender: FDA-Public Use
  Company Number: US-GLAXOSMITHKLINE-A1007691A

PATIENT
  Age: 63 Year
  Sex: Female
  Weight: 51.8 kg

DRUGS (2)
  1. TYKERB [Suspect]
     Indication: HER-2 POSITIVE BREAST CANCER
     Dosage: 1000MG PER DAY
     Route: 048
     Dates: start: 200911
  2. UNKNOWN MEDICATION [Concomitant]

REACTIONS (3)
  - Rash pustular [Recovering/Resolving]
  - Rash [Recovering/Resolving]
  - Product quality issue [Unknown]
